FAERS Safety Report 5467264-7 (Version None)
Quarter: 2007Q3

REPORT INFORMATION
  Report Type: 
  Country: None (occurrence: None)
  Receive Date: 20070820
  Receipt Date: 20070426
  Transmission Date: 20080115
  Serious: No
  Sender: FDA-Public Use
  Company Number: WAES 0704USA06073

PATIENT
  Age: 73 Year
  Sex: Male

DRUGS (3)
  1. JANUVIA [Suspect]
     Indication: TYPE 2 DIABETES MELLITUS
     Dosage: 50 MG/ DAILY/ PO
     Route: 048
     Dates: start: 20070412
  2. LANTUS [Concomitant]
  3. GLIPIZIDE [Concomitant]

REACTIONS (2)
  - COUGH [None]
  - UPPER RESPIRATORY TRACT INFECTION [None]
